FAERS Safety Report 13435924 (Version 1)
Quarter: 2017Q2

REPORT INFORMATION
  Report Type: Spontaneous
  Country: FR (occurrence: FR)
  Receive Date: 20170413
  Receipt Date: 20170413
  Transmission Date: 20170830
  Serious: Yes (Life-Threatening)
  Sender: FDA-Public Use
  Company Number: FR-PFIZER INC-2017147789

PATIENT
  Age: 69 Year
  Sex: Male

DRUGS (6)
  1. CEFOTAXIME SODIUM [Suspect]
     Active Substance: CEFOTAXIME SODIUM
     Indication: MENINGITIS
     Dosage: UNK
     Route: 042
     Dates: start: 20170120, end: 20170217
  2. KEPPRA [Concomitant]
     Active Substance: LEVETIRACETAM
     Dosage: 500 MG, 1X/DAY
     Route: 048
     Dates: end: 20170205
  3. ZYVOXID [Suspect]
     Active Substance: LINEZOLID
     Indication: MENINGITIS
     Dosage: 1200 MG, QD
     Route: 042
     Dates: start: 20170120, end: 20170217
  4. LOVENOX [Concomitant]
     Active Substance: ENOXAPARIN SODIUM
     Dosage: 1 DF, 1X/DAY
     Route: 058
     Dates: start: 20170206
  5. EUPANTOL [Suspect]
     Active Substance: PANTOPRAZOLE SODIUM
     Indication: GASTROOESOPHAGEAL REFLUX DISEASE
     Dosage: 40 MG, 1X/DAY
     Route: 048
     Dates: end: 20170215
  6. LOVENOX [Concomitant]
     Active Substance: ENOXAPARIN SODIUM
     Dosage: 1 DF, DAILY
     Route: 057
     Dates: end: 20170205

REACTIONS (3)
  - Leukopenia [Recovered/Resolved]
  - Anaemia [Recovering/Resolving]
  - Thrombocytopenia [Recovering/Resolving]

NARRATIVE: CASE EVENT DATE: 20170130
